FAERS Safety Report 23252383 (Version 1)
Quarter: 2023Q4

REPORT INFORMATION
  Report Type: Spontaneous
  Country: US (occurrence: US)
  Receive Date: 20231201
  Receipt Date: 20231201
  Transmission Date: 20240109
  Serious: No
  Sender: FDA-Public Use
  Company Number: US-LEX-000071

PATIENT
  Age: 76 Year
  Sex: Female

DRUGS (10)
  1. INPEFA [Suspect]
     Active Substance: SOTAGLIFLOZIN
     Indication: Product used for unknown indication
     Route: 048
     Dates: start: 20230913
  2. INPEFA [Suspect]
     Active Substance: SOTAGLIFLOZIN
     Indication: Product used for unknown indication
     Route: 048
  3. TRAVOPROST [Concomitant]
     Active Substance: TRAVOPROST
  4. VALSARTAN [Concomitant]
     Active Substance: VALSARTAN
  5. CARVEDILOL [Concomitant]
     Active Substance: CARVEDILOL
  6. ALAVERT ALLERGY [Concomitant]
     Active Substance: LORATADINE
  7. ASPIRIN [Concomitant]
     Active Substance: ASPIRIN
  8. SPIRONOLACTONE [Concomitant]
     Active Substance: SPIRONOLACTONE
  9. ROSUVASTATIN [Concomitant]
     Active Substance: ROSUVASTATIN
  10. CALCIUM [Concomitant]
     Active Substance: CALCIUM

REACTIONS (3)
  - Abdominal discomfort [Recovering/Resolving]
  - Diarrhoea [Recovering/Resolving]
  - Off label use [Unknown]

NARRATIVE: CASE EVENT DATE: 20231101
